FAERS Safety Report 9225148 (Version 1)
Quarter: 2013Q2

REPORT INFORMATION
  Report Type: Spontaneous
  Country: US (occurrence: US)
  Receive Date: 20130411
  Receipt Date: 20130411
  Transmission Date: 20140414
  Serious: No
  Sender: FDA-Public Use
  Company Number: US-PFIZER INC-2013114776

PATIENT
  Age: 43 Year
  Sex: Female
  Weight: 65.76 kg

DRUGS (5)
  1. LYRICA [Suspect]
     Indication: NEURALGIA
     Dosage: 100 MG DAILY
     Route: 048
     Dates: start: 201108, end: 201303
  2. LYRICA [Suspect]
     Dosage: 150MG DAILY
     Route: 048
     Dates: start: 201303
  3. CYMBALTA [Concomitant]
     Indication: DEPRESSION
     Dosage: 30MG DAILY
     Route: 048
  4. AMBIEN [Concomitant]
     Indication: INSOMNIA
     Dosage: 12.5MG DAILY
     Route: 048
  5. KLONOPIN [Concomitant]
     Indication: ANXIETY
     Dosage: 0.5MG DAILY
     Route: 048

REACTIONS (4)
  - Drug ineffective [Unknown]
  - Speech disorder [Not Recovered/Not Resolved]
  - Memory impairment [Not Recovered/Not Resolved]
  - Dizziness [Not Recovered/Not Resolved]
